FAERS Safety Report 7119962-7 (Version None)
Quarter: 2010Q4

REPORT INFORMATION
  Report Type: 
  Country: None (occurrence: None)
  Receive Date: 20101123
  Receipt Date: 20101116
  Transmission Date: 20110411
  Serious: Yes (Hospitalization)
  Sender: FDA-Public Use
  Company Number: HU-ABBOTT-10P-076-0655267-00

PATIENT
  Sex: Female

DRUGS (10)
  1. HUMIRA [Suspect]
     Indication: RHEUMATOID ARTHRITIS
     Route: 058
     Dates: start: 20091130, end: 20100401
  2. HUMIRA [Suspect]
     Dates: start: 20100517
  3. METHOTREXATE [Concomitant]
     Indication: RHEUMATOID ARTHRITIS
     Route: 048
     Dates: start: 20050125
  4. METHYLPREDNISOLONE [Concomitant]
     Indication: RHEUMATOID ARTHRITIS
     Dosage: 4 MG DAILY
     Route: 048
     Dates: start: 20050125
  5. FOLIC ACID [Concomitant]
     Indication: PROPHYLAXIS
     Dosage: 5 MG DAILY
     Route: 048
     Dates: start: 20050125
  6. ISONICID [Concomitant]
     Indication: ANTIBIOTIC PROPHYLAXIS
     Dosage: 300 MG DAILY
     Route: 048
     Dates: start: 20100319
  7. SYNCUMAR [Concomitant]
     Indication: THROMBOSIS PROPHYLAXIS
     Dosage: 2 MG DAILY
     Route: 048
     Dates: start: 20100501
  8. ACTOMEL TRIO [Concomitant]
     Indication: OSTEOPOROSIS
     Dosage: 2 TBL DAILY
     Route: 048
     Dates: start: 20100319
  9. CALCIUM +VIT D [Concomitant]
     Indication: OSTEOPOROSIS
     Dosage: 2 TBL DAILY
     Route: 048
     Dates: start: 20100319
  10. INH THERAPY [Concomitant]
     Indication: PRODUCT USED FOR UNKNOWN INDICATION

REACTIONS (1)
  - THROMBOPHLEBITIS [None]
